FAERS Safety Report 10741311 (Version 4)
Quarter: 2015Q3

REPORT INFORMATION
  Report Type: Spontaneous
  Country: CZ (occurrence: CZ)
  Receive Date: 20150127
  Receipt Date: 20150914
  Transmission Date: 20151125
  Serious: Yes (Death, Hospitalization, Other)
  Sender: FDA-Public Use
  Company Number: CZ-ELI_LILLY_AND_COMPANY-CZ201501007830

PATIENT
  Age: 47 Year
  Sex: Female

DRUGS (9)
  1. ENELBIN                            /00247502/ [Concomitant]
     Dosage: UNK
     Route: 065
  2. METYPRED                           /00049601/ [Concomitant]
     Active Substance: METHYLPREDNISOLONE
     Dosage: 4 MG, UNK
     Route: 065
  3. VITAMIN E                          /07493501/ [Concomitant]
     Dosage: UNK
     Route: 065
  4. FORSTEO [Suspect]
     Active Substance: TERIPARATIDE
     Indication: OSTEOPOROTIC FRACTURE
  5. LOMIR [Concomitant]
     Dosage: UNK
     Route: 065
  6. FORSTEO [Suspect]
     Active Substance: TERIPARATIDE
     Indication: OSTEOPOROSIS
     Dosage: 20 UG, QD
     Route: 058
     Dates: start: 20140605
  7. VIGANTOL                           /00318501/ [Concomitant]
     Dosage: UNK
     Route: 065
  8. VESSEL DUE [Concomitant]
     Dosage: UNK
     Route: 065
  9. APO OME [Concomitant]
     Dosage: UNK
     Route: 065

REACTIONS (5)
  - Lung adenocarcinoma metastatic [Fatal]
  - Pneumonia [Unknown]
  - Metastases to soft tissue [Unknown]
  - Cardiopulmonary failure [Fatal]
  - Cachexia [Unknown]

NARRATIVE: CASE EVENT DATE: 20141216
